FAERS Safety Report 14141854 (Version 1)
Quarter: 2017Q4

REPORT INFORMATION
  Report Type: Spontaneous
  Country: IN (occurrence: IN)
  Receive Date: 20171030
  Receipt Date: 20171030
  Transmission Date: 20180321
  Serious: Yes (Hospitalization, Other)
  Sender: FDA-Public Use
  Company Number: IN-MYLANLABS-2017M1067346

PATIENT
  Age: 28 Year
  Sex: Female

DRUGS (5)
  1. DICLOFENAC [Concomitant]
     Active Substance: DICLOFENAC
     Indication: MUSCULOSKELETAL PAIN
     Dosage: UNK
     Route: 030
  2. DICLOFENAC [Concomitant]
     Active Substance: DICLOFENAC
     Dosage: 1 ML INJECTION DAILY
     Route: 030
  3. TRAMADOL. [Suspect]
     Active Substance: TRAMADOL
     Indication: MUSCULOSKELETAL PAIN
     Dosage: STARTED 3 YEARS BACK; 2-3 DAYS ONCE FOR INITIAL 6-7 MONTHS, INCREASED TO
     Route: 030
  4. TRAMADOL. [Suspect]
     Active Substance: TRAMADOL
     Dosage: 300MG/DAY
     Route: 030
  5. TRAMADOL. [Suspect]
     Active Substance: TRAMADOL
     Indication: DRUG USE DISORDER
     Dosage: 1 ML INJECTION (50MG/ML) DAILY
     Route: 030

REACTIONS (9)
  - Unresponsive to stimuli [Unknown]
  - Cold sweat [Unknown]
  - Respiratory rate decreased [Unknown]
  - Injection site abscess [Unknown]
  - Drug abuse [Recovering/Resolving]
  - Drug dependence [Recovering/Resolving]
  - Drug withdrawal syndrome [Unknown]
  - Intentional overdose [Unknown]
  - Injection site ulcer [Unknown]
